FAERS Safety Report 10426786 (Version 1)
Quarter: 2014Q3

REPORT INFORMATION
  Report Type: Spontaneous
  Country: US (occurrence: None)
  Receive Date: 20140902
  Receipt Date: 20140902
  Transmission Date: 20150326
  Serious: Yes (Disabling)
  Sender: FDA-Public Use
  Company Number: None

PATIENT
  Age: 36 Year
  Sex: Female
  Weight: 94.35 kg

DRUGS (2)
  1. NEURONTIN [Suspect]
     Active Substance: GABAPENTIN
     Indication: ANXIETY
     Route: 048
     Dates: start: 20140730, end: 20140825
  2. NEURONTIN [Suspect]
     Active Substance: GABAPENTIN
     Indication: SLEEP DISORDER
     Route: 048
     Dates: start: 20140730, end: 20140825

REACTIONS (5)
  - Contusion [None]
  - Withdrawal syndrome [None]
  - Off label use [None]
  - Fatigue [None]
  - Haemorrhage subcutaneous [None]

NARRATIVE: CASE EVENT DATE: 20140824
